FAERS Safety Report 9043197 (Version 1)
Quarter: 2013Q1

REPORT INFORMATION
  Report Type: Report from Study
  Country: US (occurrence: US)
  Receive Date: 20130129
  Receipt Date: 20130129
  Transmission Date: 20140127
  Serious: No
  Sender: FDA-Public Use
  Company Number: US-ABBOTT-12P-163-0902508-00

PATIENT
  Age: 49 Year
  Sex: Female

DRUGS (7)
  1. HUMIRA 40 MG/0.8 ML PEN [Suspect]
     Indication: CROHN^S DISEASE
     Dates: start: 20120112, end: 20120112
  2. HUMIRA 40 MG/0.8 ML PEN [Suspect]
     Dosage: LAST DOSE
     Dates: start: 20120126
  3. HUMIRA 40 MG/0.8 ML PEN [Suspect]
  4. MIRCETTE [Concomitant]
     Indication: ORAL CONTRACEPTION
     Dosage: AS DIRECTED
     Route: 048
  5. LORTAB [Concomitant]
     Indication: NECK PAIN
     Dosage: 1/2-1 AS NEEDED
  6. CELEXA [Concomitant]
     Indication: PRODUCT USED FOR UNKNOWN INDICATION
     Route: 048
  7. CALCIUM [Concomitant]
     Indication: MINERAL SUPPLEMENTATION

REACTIONS (9)
  - Oropharyngeal pain [Recovering/Resolving]
  - Fatigue [Not Recovered/Not Resolved]
  - Nasal congestion [Recovering/Resolving]
  - Formication [Not Recovered/Not Resolved]
  - Respiratory tract congestion [Recovering/Resolving]
  - Productive cough [Recovering/Resolving]
  - Sputum discoloured [Recovering/Resolving]
  - Feeling abnormal [Not Recovered/Not Resolved]
  - Bronchitis [Recovering/Resolving]
